FAERS Safety Report 7359290-8 (Version None)
Quarter: 2011Q1

REPORT INFORMATION
  Report Type: 
  Country: None (occurrence: None)
  Receive Date: 20110317
  Receipt Date: 20090923
  Transmission Date: 20110831
  Serious: No
  Sender: FDA-Public Use
  Company Number: US-PFIZER INC-2009252797

PATIENT
  Sex: Female
  Weight: 72.109 kg

DRUGS (2)
  1. LASIX [Concomitant]
     Dosage: UNK
  2. NORVASC [Suspect]
     Indication: CARDIAC DISORDER
     Dosage: 5 MG/DAY
     Route: 048

REACTIONS (2)
  - PARAESTHESIA [None]
  - FEELING ABNORMAL [None]
